FAERS Safety Report 13366296 (Version 1)
Quarter: 2017Q1

REPORT INFORMATION
  Report Type: Spontaneous
  Country: None (occurrence: US)
  Receive Date: 20170323
  Receipt Date: 20170323
  Transmission Date: 20170429
  Serious: Yes (Hospitalization, Other)
  Sender: FDA-Public Use
  Company Number: US-TEVA-751929USA

PATIENT
  Age: 61 Year
  Sex: Female

DRUGS (15)
  1. MONTELUKAST [Concomitant]
     Active Substance: MONTELUKAST SODIUM
  2. AMLODIPINE [Concomitant]
     Active Substance: AMLODIPINE BESYLATE
  3. HYDROCODONE BITARTRATE AND ACETAMINOPHEN [Concomitant]
     Active Substance: ACETAMINOPHEN\HYDROCODONE BITARTRATE
  4. MOMETASONE [Concomitant]
     Active Substance: MOMETASONE
  5. LOSARTAN. [Concomitant]
     Active Substance: LOSARTAN
  6. OXYBUTYNIN [Concomitant]
     Active Substance: OXYBUTYNIN
  7. DICYCLOMINE [Concomitant]
     Active Substance: DICYCLOMINE HYDROCHLORIDE
  8. ALPRAZOLAM. [Concomitant]
     Active Substance: ALPRAZOLAM
  9. CYCLOBENZAPRINE [Concomitant]
     Active Substance: CYCLOBENZAPRINE
  10. COPAXONE [Suspect]
     Active Substance: GLATIRAMER ACETATE
     Indication: MULTIPLE SCLEROSIS
     Route: 058
     Dates: start: 20150304
  11. NAPROXEN. [Concomitant]
     Active Substance: NAPROXEN
  12. GABAPENTIN. [Concomitant]
     Active Substance: GABAPENTIN
  13. QUETIAPINE. [Concomitant]
     Active Substance: QUETIAPINE
  14. LAMOTRIGINE. [Concomitant]
     Active Substance: LAMOTRIGINE
  15. SERTRALINE [Concomitant]
     Active Substance: SERTRALINE HYDROCHLORIDE

REACTIONS (3)
  - Multiple sclerosis relapse [Unknown]
  - Stress [Unknown]
  - Spinal operation [Unknown]

NARRATIVE: CASE EVENT DATE: 2017
